FAERS Safety Report 16877802 (Version 1)
Quarter: 2019Q4

REPORT INFORMATION
  Report Type: Spontaneous
  Country: US (occurrence: US)
  Receive Date: 20191002
  Receipt Date: 20191002
  Transmission Date: 20200122
  Serious: No
  Sender: FDA-Public Use
  Company Number: US-ASTRAZENECA-2019SF32058

PATIENT
  Sex: Female
  Weight: 92.5 kg

DRUGS (1)
  1. BYDUREON BCISE [Suspect]
     Active Substance: EXENATIDE
     Indication: DIABETES MELLITUS
     Route: 058

REACTIONS (5)
  - Weight decreased [Unknown]
  - Wrong technique in device usage process [Recovered/Resolved]
  - Incorrect dose administered by device [Recovered/Resolved]
  - Device leakage [Recovered/Resolved]
  - Intentional product misuse [Recovered/Resolved]
